FAERS Safety Report 8549522-2 (Version None)
Quarter: 2012Q3

REPORT INFORMATION
  Report Type: 
  Country: None (occurrence: None)
  Receive Date: 20120730
  Receipt Date: 20120725
  Transmission Date: 20120928
  Serious: Yes (Hospitalization)
  Sender: FDA-Public Use
  Company Number: US-PFIZER INC-2012181514

PATIENT

DRUGS (3)
  1. PRISTIQ [Suspect]
     Indication: DEPRESSION
     Dosage: 50 MG, UNK
  2. DILAUDID [Suspect]
     Indication: PAIN
     Dosage: 8 MG
  3. DILAUDID [Suspect]
     Dosage: 60- 8MG TABLETS ALL AT ONCE

REACTIONS (2)
  - OVERDOSE [None]
  - SUICIDE ATTEMPT [None]
